FAERS Safety Report 14425921 (Version 3)
Quarter: 2018Q2

REPORT INFORMATION
  Report Type: Spontaneous
  Country: JP (occurrence: JP)
  Receive Date: 20180123
  Receipt Date: 20180524
  Transmission Date: 20180711
  Serious: Yes (Death, Hospitalization)
  Sender: FDA-Public Use
  Company Number: JP-PFIZER INC-2018028477

PATIENT
  Age: 76 Year
  Sex: Female
  Weight: 50 kg

DRUGS (10)
  1. RHEUMATREX [Suspect]
     Active Substance: METHOTREXATE SODIUM
     Dosage: 6 MG, WEEKLY
     Route: 048
     Dates: start: 20121018, end: 20141218
  2. FOLIAMIN [Concomitant]
     Active Substance: FOLIC ACID
     Indication: PROPHYLAXIS
     Dosage: 5 MG, 1X/DAY
     Route: 048
     Dates: start: 20110108, end: 20180108
  3. FORTEO [Concomitant]
     Active Substance: TERIPARATIDE
     Indication: OSTEOPOROSIS
     Dosage: 20 UG, 1X/DAY
     Route: 058
     Dates: start: 20160909, end: 20180105
  4. BLOPRESS [Concomitant]
     Active Substance: CANDESARTAN CILEXETIL
     Indication: HYPERTENSION
     Dosage: 8 MG, 1X/DAY
     Route: 048
     Dates: start: 20121105
  5. RHEUMATREX [Suspect]
     Active Substance: METHOTREXATE SODIUM
     Dosage: 8 MG, WEEKLY
     Route: 048
     Dates: start: 20110203, end: 20121017
  6. RHEUMATREX [Suspect]
     Active Substance: METHOTREXATE SODIUM
     Indication: RHEUMATOID ARTHRITIS
     Dosage: 6 MG, WEEKLY
     Route: 048
     Dates: start: 20110106, end: 20110202
  7. REMICADE [Suspect]
     Active Substance: INFLIXIMAB
     Indication: RHEUMATOID ARTHRITIS
     Dosage: 170 MG, UNK
     Route: 042
     Dates: start: 20110307, end: 20171215
  8. RHEUMATREX [Suspect]
     Active Substance: METHOTREXATE SODIUM
     Dosage: 8 MG, WEEKLY
     Route: 048
     Dates: start: 20150529, end: 20180112
  9. TAKEPRON [Concomitant]
     Active Substance: LANSOPRAZOLE
     Indication: GASTROOESOPHAGEAL REFLUX DISEASE
     Dosage: 15 MG, 1X/DAY
     Route: 048
     Dates: start: 20120214
  10. RHEUMATREX [Suspect]
     Active Substance: METHOTREXATE SODIUM
     Dosage: 10 MG, WEEKLY
     Route: 048
     Dates: start: 20141219, end: 20150528

REACTIONS (3)
  - Bone marrow infiltration [Unknown]
  - Lymphoma [Unknown]
  - Death [Fatal]

NARRATIVE: CASE EVENT DATE: 20171221
